FAERS Safety Report 7381262-8 (Version None)
Quarter: 2011Q1

REPORT INFORMATION
  Report Type: 
  Country: None (occurrence: None)
  Receive Date: 20110329
  Receipt Date: 20110315
  Transmission Date: 20110831
  Serious: Yes (Hospitalization)
  Sender: FDA-Public Use
  Company Number: CA-JNJFOC-20101200946

PATIENT
  Sex: Male
  Weight: 104 kg

DRUGS (4)
  1. DRUGS FOR FUNCTIONAL GASTROINTEST. DISORDERS [Concomitant]
  2. CORTICOSTEROID NOS [Concomitant]
  3. REMICADE [Suspect]
     Indication: CROHN'S DISEASE
     Route: 042
  4. REMICADE [Suspect]
     Route: 042

REACTIONS (1)
  - LYMPHOCYTE MORPHOLOGY ABNORMAL [None]
